FAERS Safety Report 15082366 (Version 2)
Quarter: 2018Q3

REPORT INFORMATION
  Report Type: Spontaneous
  Country: US (occurrence: US)
  Receive Date: 20180628
  Receipt Date: 20180726
  Transmission Date: 20181010
  Serious: No
  Sender: FDA-Public Use
  Company Number: US-009507513-1806USA009487

PATIENT
  Sex: Female

DRUGS (1)
  1. GANIRELIX ACETATE INJECTION [Suspect]
     Active Substance: GANIRELIX ACETATE
     Dosage: 250 MCG/0.5 ML, UNK
     Route: 058

REACTIONS (4)
  - Product quality issue [Unknown]
  - Injury associated with device [Unknown]
  - Accidental exposure to product [Unknown]
  - No adverse event [Unknown]
